FAERS Safety Report 19059618 (Version 1)
Quarter: 2021Q1

REPORT INFORMATION
  Report Type: Spontaneous
  Country: US (occurrence: US)
  Receive Date: 20210326
  Receipt Date: 20210326
  Transmission Date: 20210420
  Serious: Yes (Life-Threatening, Hospitalization, Other)
  Sender: FDA-Public Use
  Company Number: US-LUPIN PHARMACEUTICALS INC.-2021-03743

PATIENT
  Age: 14 Year
  Sex: Female

DRUGS (3)
  1. PROPRANOLOL [Interacting]
     Active Substance: PROPRANOLOL HYDROCHLORIDE
     Indication: PRODUCT USED FOR UNKNOWN INDICATION
     Dosage: 910 MILLIGRAM, SINGLE? PILLS
     Route: 048
  2. FLUOXETINE [Suspect]
     Active Substance: FLUOXETINE HYDROCHLORIDE
     Indication: PRODUCT USED FOR UNKNOWN INDICATION
     Dosage: 630 MILLIGRAM, SINGLE? PILLS
     Route: 048
  3. QUETIAPINE FUMARATE. [Interacting]
     Active Substance: QUETIAPINE FUMARATE
     Indication: PRODUCT USED FOR UNKNOWN INDICATION
     Dosage: 8400 MILLIGRAM, SINGLE? PILLS
     Route: 048

REACTIONS (6)
  - Toxicity to various agents [Unknown]
  - Depressed level of consciousness [Recovering/Resolving]
  - Hypotension [Recovering/Resolving]
  - Overdose [Unknown]
  - Drug interaction [Unknown]
  - Bezoar [Unknown]
